FAERS Safety Report 8346183 (Version 3)
Quarter: 2013Q2

REPORT INFORMATION
  Report Type: Spontaneous
  Country: US (occurrence: None)
  Receive Date: 20111212
  Receipt Date: 20120611
  Transmission Date: 20140414
  Serious: Yes (Other)
  Sender: FDA-Public Use
  Company Number: PHEH2011US03662

PATIENT
  Age: 41 Year
  Sex: Female

DRUGS (1)
  1. EXTAVIA [Suspect]
     Indication: MULTIPLE SCLEROSIS
     Dosage: 0.25 MG, QOD, SUBCUTANEOUS
     Route: 058
     Dates: start: 20110601, end: 20120104

REACTIONS (7)
  - SELF-INJURIOUS IDEATION [None]
  - DEHYDRATION [None]
  - DEPRESSION [None]
  - NAUSEA [None]
  - MULTIPLE SCLEROSIS RELAPSE [None]
  - ANXIETY [None]
  - VOMITING [None]
